FAERS Safety Report 5889234-7 (Version None)
Quarter: 2008Q3

REPORT INFORMATION
  Report Type: 
  Country: None (occurrence: None)
  Receive Date: 20080919
  Receipt Date: 20080911
  Transmission Date: 20090109
  Serious: Yes (Other)
  Sender: FDA-Public Use
  Company Number: US-ROCHE-585918

PATIENT

DRUGS (2)
  1. XELODA [Suspect]
     Route: 065
  2. XELODA [Suspect]
     Route: 065

REACTIONS (2)
  - BILE DUCT CANCER RECURRENT [None]
  - CEREBRAL ATAXIA [None]
